FAERS Safety Report 20617430 (Version 1)
Quarter: 2022Q1

REPORT INFORMATION
  Report Type: Spontaneous
  Country: US (occurrence: None)
  Receive Date: 20220320
  Receipt Date: 20220320
  Transmission Date: 20220424
  Serious: Yes (Other)
  Sender: FDA-Public Use
  Company Number: None

PATIENT
  Age: 48 Year
  Sex: Female
  Weight: 61.65 kg

DRUGS (6)
  1. ACETAMINOPHEN PAIN RELIEVER,FEVER REDUCER 500 MG [Suspect]
     Active Substance: ACETAMINOPHEN
     Indication: Neck pain
     Dosage: OTHER QUANTITY : 1 TABLET(S);?OTHER FREQUENCY : I TOOK ONE;?
     Route: 048
  2. ACETAMINOPHEN PAIN RELIEVER,FEVER REDUCER 500 MG [Suspect]
     Active Substance: ACETAMINOPHEN
     Indication: Spondylitis
  3. ACETAMINOPHEN PAIN RELIEVER,FEVER REDUCER 500 MG [Suspect]
     Active Substance: ACETAMINOPHEN
     Indication: Migraine
  4. MEMANTINE [Concomitant]
     Active Substance: MEMANTINE
  5. NURTEC ODT [Concomitant]
     Active Substance: RIMEGEPANT SULFATE
  6. TYLENOL [Concomitant]
     Active Substance: ACETAMINOPHEN

REACTIONS (1)
  - Somnolence [None]

NARRATIVE: CASE EVENT DATE: 20220320
